FAERS Safety Report 14476048 (Version 3)
Quarter: 2019Q2

REPORT INFORMATION
  Report Type: Spontaneous
  Country: FR (occurrence: FR)
  Receive Date: 20180201
  Receipt Date: 20190528
  Transmission Date: 20190711
  Serious: Yes (Death, Life-Threatening, Other)
  Sender: FDA-Public Use
  Company Number: FR-MYLANLABS-2018M1005947

PATIENT
  Age: 49 Year
  Sex: Female
  Weight: 75 kg

DRUGS (9)
  1. ELIQUIS [Suspect]
     Active Substance: APIXABAN
     Indication: DEEP VEIN THROMBOSIS
     Dosage: 10 MG, QD (5 MG BID)
     Route: 048
  2. PROFENID [Suspect]
     Active Substance: KETOPROFEN
     Indication: PAIN
     Dosage: 300 MG, QD (100 MG, TID)
     Route: 048
     Dates: start: 20170104
  3. OXOMEMAZINE [Concomitant]
     Active Substance: OXOMEMAZINE
     Indication: PRODUCT USED FOR UNKNOWN INDICATION
     Dosage: UNK
  4. KETOPROFEN. [Suspect]
     Active Substance: KETOPROFEN
     Dosage: 300 MG, QD
     Route: 048
  5. ELIQUIS [Suspect]
     Active Substance: APIXABAN
     Dosage: 20 MG, QD (10 MG, BID)
     Route: 048
     Dates: start: 20170104
  6. PARACETAMOL [Suspect]
     Active Substance: ACETAMINOPHEN
     Indication: PAIN
     Dosage: 4000 MG, QD (1000 MG, Q6H)
     Route: 048
     Dates: start: 20170104
  7. PYOSTACINE [Concomitant]
     Active Substance: PRISTINAMYCIN
     Indication: PRODUCT USED FOR UNKNOWN INDICATION
     Dosage: UNK
  8. BECOTIDE [Concomitant]
     Active Substance: BECLOMETHASONE DIPROPIONATE
     Indication: PRODUCT USED FOR UNKNOWN INDICATION
     Dosage: UNK
  9. KETOPROFEN. [Suspect]
     Active Substance: KETOPROFEN
     Indication: PAIN
     Dosage: 300 MILLIGRAM, QD
     Route: 048
     Dates: start: 20170104

REACTIONS (7)
  - Respiratory rate increased [Unknown]
  - Loss of consciousness [Unknown]
  - Throat tightness [Unknown]
  - Nausea [Unknown]
  - Malaise [Unknown]
  - Sudden death [Fatal]
  - Bronchitis [Unknown]

NARRATIVE: CASE EVENT DATE: 20170108
